FAERS Safety Report 5224382-6 (Version None)
Quarter: 2007Q1

REPORT INFORMATION
  Report Type: 
  Country: None (occurrence: None)
  Receive Date: 20070130
  Receipt Date: 20070118
  Transmission Date: 20070707
  Serious: Yes (Hospitalization)
  Sender: FDA-Public Use
  Company Number: DE-PFIZER INC-2005079962

PATIENT
  Sex: Male
  Weight: 85 kg

DRUGS (3)
  1. SU-011,248 [Suspect]
     Indication: GASTROINTESTINAL STROMAL TUMOUR
     Route: 048
     Dates: start: 20050505, end: 20050518
  2. NOVALGIN [Concomitant]
     Route: 048
  3. METOCLOPRAMIDE [Concomitant]
     Dosage: FREQ:3X1
     Route: 048

REACTIONS (1)
  - RENAL IMPAIRMENT [None]
